FAERS Safety Report 6824850-7 (Version None)
Quarter: 2010Q3

REPORT INFORMATION
  Report Type: 
  Country: None (occurrence: None)
  Receive Date: 20100708
  Receipt Date: 20061201
  Transmission Date: 20110219
  Serious: No
  Sender: FDA-Public Use
  Company Number: US-PFIZER INC-2006151878

PATIENT
  Age: 50 Year
  Sex: Female
  Weight: 72.57 kg

DRUGS (7)
  1. CHANTIX [Suspect]
     Indication: SMOKING CESSATION THERAPY
     Dates: start: 20061101, end: 20061101
  2. AVANDIA [Concomitant]
  3. METFORMIN HCL [Concomitant]
  4. TOPROL-XL [Concomitant]
  5. LIPITOR [Concomitant]
  6. ACETYLSALICYLIC ACID [Concomitant]
  7. TOPAMAX [Concomitant]

REACTIONS (5)
  - ASTHENIA [None]
  - FATIGUE [None]
  - HEART RATE INCREASED [None]
  - NAUSEA [None]
  - SOMNOLENCE [None]
